FAERS Safety Report 6112783-3 (Version None)
Quarter: 2009Q1

REPORT INFORMATION
  Report Type: 
  Country: None (occurrence: None)
  Receive Date: 20090312
  Receipt Date: 20090305
  Transmission Date: 20090719
  Serious: Yes (Hospitalization, Other)
  Sender: FDA-Public Use
  Company Number: US-AMGEN-QUU337002

PATIENT
  Sex: Female

DRUGS (6)
  1. KINERET [Suspect]
     Indication: DRUG USE FOR UNKNOWN INDICATION
  2. CALCIUM CARBONATE [Concomitant]
  3. PREDNISONE [Concomitant]
  4. ZOLOFT [Concomitant]
  5. DOXEPIN HCL [Concomitant]
  6. PERCOCET [Concomitant]

REACTIONS (2)
  - BONE MARROW DISORDER [None]
  - JUVENILE ARTHRITIS [None]
